FAERS Safety Report 4762881-1 (Version None)
Quarter: 2005Q3

REPORT INFORMATION
  Report Type: 
  Country: None (occurrence: None)
  Receive Date: 20050907
  Receipt Date: 20041015
  Transmission Date: 20060218
  Serious: Yes (Other)
  Sender: FDA-Public Use
  Company Number: PHBS2004BR13720

PATIENT
  Sex: Female

DRUGS (1)
  1. ZOMETA [Suspect]
     Indication: METASTASES TO BONE
     Dosage: ONCE PER MONTH
     Route: 042
     Dates: start: 20020725

REACTIONS (12)
  - BONE DISORDER [None]
  - MUSCLE SPASMS [None]
  - NASAL SEPTUM DEVIATION [None]
  - NASOPHARYNGITIS [None]
  - OSTEONECROSIS [None]
  - PARAESTHESIA [None]
  - PHARYNGITIS [None]
  - RHINITIS [None]
  - SINUS DISORDER [None]
  - SOFT TISSUE DISORDER [None]
  - SURGERY [None]
  - ULCER [None]
